FAERS Safety Report 5336764-2 (Version None)
Quarter: 2007Q2

REPORT INFORMATION
  Report Type: 
  Country: None (occurrence: None)
  Receive Date: 20070529
  Receipt Date: 20070518
  Transmission Date: 20071010
  Serious: Yes (Hospitalization, Other)
  Sender: FDA-Public Use
  Company Number: PHBS2007JP08472

PATIENT
  Age: 84 Year
  Sex: Female

DRUGS (3)
  1. DIOVAN [Suspect]
     Indication: HYPERTENSION
     Dosage: 80 MG/DAY
     Route: 048
     Dates: start: 20060725, end: 20070115
  2. SPIRIVA [Concomitant]
     Dates: start: 20051227
  3. FRANDOL [Concomitant]
     Dates: start: 20051227

REACTIONS (2)
  - LIVER DISORDER [None]
  - THROMBOCYTOPENIA [None]
